FAERS Safety Report 7285429-9 (Version None)
Quarter: 2011Q1

REPORT INFORMATION
  Report Type: 
  Country: None (occurrence: None)
  Receive Date: 20110121
  Receipt Date: 20051011
  Transmission Date: 20110831
  Serious: No
  Sender: FDA-Public Use
  Company Number: 019

PATIENT
  Sex: Female

DRUGS (1)
  1. FAZACLO ODT [Suspect]
     Indication: SCHIZOPHRENIA
     Dosage: 300 MG DAILY
     Dates: start: 20050801, end: 20051001

REACTIONS (1)
  - RASH [None]
